FAERS Safety Report 9791577 (Version 3)
Quarter: 2014Q1

REPORT INFORMATION
  Report Type: Spontaneous
  Country: NL (occurrence: NL)
  Receive Date: 20140101
  Receipt Date: 20140123
  Transmission Date: 20141002
  Serious: Yes (Other)
  Sender: FDA-Public Use
  Company Number: NL-BRISTOL-MYERS SQUIBB COMPANY-19935394

PATIENT
  Age: 64 Year
  Sex: Male
  Weight: 92 kg

DRUGS (5)
  1. PRAVASTATINE TABS 20 MG [Suspect]
     Indication: BLOOD CHOLESTEROL INCREASED
     Dates: start: 20130910
  2. VALSARTAN [Concomitant]
     Dosage: 80MG COATED TABLET
     Dates: start: 20090223
  3. INSPRA [Concomitant]
     Dosage: TABS
     Dates: start: 20090223
  4. BISOPROLOL FUMARATE [Concomitant]
     Dates: start: 20090223
  5. BISOPROLOL FUMARATE [Concomitant]
     Dates: start: 20090223

REACTIONS (6)
  - Depressed mood [Recovering/Resolving]
  - Myalgia [Recovering/Resolving]
  - Abdominal pain upper [Recovering/Resolving]
  - Fatigue [Recovering/Resolving]
  - Tinnitus [Recovering/Resolving]
  - Senile dementia [Recovering/Resolving]
